FAERS Safety Report 9806242 (Version 1)
Quarter: 2014Q1

REPORT INFORMATION
  Report Type: Spontaneous
  Country: BR (occurrence: None)
  Receive Date: 20140107
  Receipt Date: 20140107
  Transmission Date: 20141002
  Serious: Yes (Hospitalization, Other)
  Sender: FDA-Public Use
  Company Number: AUR-APL-2014-00047

PATIENT
  Age: 63 Year
  Sex: Male

DRUGS (2)
  1. AMOXICILLIN+CLAVULANIC ACID [Suspect]
     Indication: EAR INFECTION
     Dosage: 1500MG (500MG, 3 IN 1 D)
  2. ATENOLOL CHLORTHALIDONE (TENORETIC) [Concomitant]

REACTIONS (1)
  - Hepatitis cholestatic [None]
